FAERS Safety Report 6428353-3 (Version None)
Quarter: 2009Q4

REPORT INFORMATION
  Report Type: 
  Country: None (occurrence: None)
  Receive Date: 20091104
  Receipt Date: 20091104
  Transmission Date: 20100525
  Serious: Yes (Hospitalization)
  Sender: FDA-Public Use
  Company Number: None

PATIENT
  Age: 86 Year
  Sex: Male
  Weight: 120.7 kg

DRUGS (1)
  1. METOPROLOL TARTRATE [Suspect]
     Indication: HYPERTENSION
     Dosage: 25 MG BID PO
     Route: 048
     Dates: start: 20090508, end: 20090815

REACTIONS (6)
  - EXCORIATION [None]
  - FALL [None]
  - HYPOTENSION [None]
  - PALPITATIONS [None]
  - SUBDURAL HAEMATOMA [None]
  - SYNCOPE [None]
